FAERS Safety Report 4441999-7 (Version None)
Quarter: 2004Q3

REPORT INFORMATION
  Report Type: 
  Country: None (occurrence: None)
  Receive Date: 20040901
  Receipt Date: 20040817
  Transmission Date: 20050211
  Serious: Yes (Hospitalization, Other)
  Sender: FDA-Public Use
  Company Number: 2004-BP-00883NB

PATIENT
  Age: 36 Year
  Sex: Male

DRUGS (7)
  1. VIRAMUNE [Suspect]
     Indication: HIV INFECTION
     Dosage: SEE IMAGE
     Route: 048
     Dates: start: 20020320, end: 20020618
  2. VIRAMUNE [Suspect]
     Indication: HIV INFECTION
     Dosage: SEE IMAGE
     Route: 048
     Dates: start: 20020718, end: 20020731
  3. COMBIVIR [Suspect]
     Indication: HIV INFECTION
     Dosage: 2 ANZ
     Route: 048
     Dates: start: 20020320, end: 20020618
  4. VIRACEPT [Suspect]
     Indication: HIV INFECTION
     Dosage: 2.5 G
     Route: 048
     Dates: start: 20020718
  5. BENAMBAX (PENTAMIDINE) [Concomitant]
  6. ALLEGRA [Concomitant]
  7. LORAZEPAM [Concomitant]

REACTIONS (8)
  - ANAEMIA [None]
  - CHOKING [None]
  - DIARRHOEA [None]
  - FATIGUE [None]
  - LACTIC ACIDOSIS [None]
  - MALAISE [None]
  - PALPITATIONS [None]
  - RHINITIS ALLERGIC [None]
